FAERS Safety Report 9523856 (Version 1)
Quarter: 2013Q3

REPORT INFORMATION
  Report Type: Spontaneous
  Country: US (occurrence: None)
  Receive Date: 20130912
  Receipt Date: 20130912
  Transmission Date: 20140515
  Serious: Yes (Life-Threatening, Hospitalization)
  Sender: FDA-Public Use
  Company Number: DAV-AE-PTU-13-03

PATIENT
  Age: 37 Year
  Sex: Female

DRUGS (3)
  1. PROPYLTHIOURACIL [Suspect]
     Indication: HYPERTHYROIDISM
  2. DIPHENHYDRAMINE [Concomitant]
  3. HYDROCORTISONE CREAM [Concomitant]

REACTIONS (11)
  - Maternal exposure during pregnancy [None]
  - Systemic inflammatory response syndrome [None]
  - Sepsis [None]
  - Hyperthyroidism [None]
  - Haemoglobin decreased [None]
  - Ecthyma [None]
  - Staphylococcal skin infection [None]
  - Basedow^s disease [None]
  - Abortion spontaneous [None]
  - Agranulocytosis [None]
  - Febrile neutropenia [None]
